FAERS Safety Report 4637967-2 (Version None)
Quarter: 2005Q2

REPORT INFORMATION
  Report Type: 
  Country: None (occurrence: None)
  Receive Date: 20050415
  Receipt Date: 20050330
  Transmission Date: 20051028
  Serious: Yes (Hospitalization)
  Sender: FDA-Public Use
  Company Number: 200503IM000113

PATIENT
  Age: 55 Year
  Sex: Male

DRUGS (6)
  1. ADVAFERON (A643_INTERFERON ALFACON-1) [Suspect]
     Indication: HEPATITIS C
     Dosage: 12 MIU, SUBCUTANEOUS
     Route: 058
     Dates: start: 20031007, end: 20031021
  2. PEGASYS [Concomitant]
  3. URSODEOXYCHOLIC ACID [Concomitant]
  4. LAFUTINIDE [Concomitant]
  5. LANSOPRAZOLE [Concomitant]
  6. OMEPRAZOLE [Concomitant]

REACTIONS (3)
  - ANOREXIA [None]
  - DEPRESSED MOOD [None]
  - FAMILY STRESS [None]
